FAERS Safety Report 7352790-6 (Version None)
Quarter: 2011Q1

REPORT INFORMATION
  Report Type: 
  Country: None (occurrence: None)
  Receive Date: 20110310
  Receipt Date: 20110310
  Transmission Date: 20110831
  Serious: Yes (Hospitalization)
  Sender: FDA-Public Use
  Company Number: None

PATIENT
  Age: 76 Year
  Sex: Male
  Weight: 73.8 kg

DRUGS (11)
  1. AMLODIPINE BESYLATE [Suspect]
  2. GLIPIZIDE [Suspect]
     Indication: DIABETES MELLITUS
     Dosage: 10MG DAILY PO
     Route: 048
  3. ENALAPRIL MALEATE [Concomitant]
  4. RANTIDINE [Concomitant]
  5. SIMVASTATIN [Suspect]
  6. VALSARTAN [Concomitant]
  7. DOXAZOSIN MESYLATE [Suspect]
  8. TICLODIPINE [Concomitant]
  9. METOPROLOL TARTRATE [Suspect]
  10. FLOVENT [Concomitant]
  11. METFORMIN HCL [Suspect]

REACTIONS (9)
  - FALL [None]
  - HYPERHIDROSIS [None]
  - BLOOD GLUCOSE DECREASED [None]
  - WHEEZING [None]
  - INCORRECT DOSE ADMINISTERED [None]
  - ASTHENIA [None]
  - SPEECH DISORDER [None]
  - BLOOD PRESSURE INCREASED [None]
  - RESPIRATORY RATE INCREASED [None]
